FAERS Safety Report 4786791-9 (Version None)
Quarter: 2005Q4

REPORT INFORMATION
  Report Type: 
  Country: None (occurrence: None)
  Receive Date: 20051004
  Receipt Date: 20050920
  Transmission Date: 20060501
  Serious: Yes (Hospitalization, Other)
  Sender: FDA-Public Use
  Company Number: DE-JNJFOC-20050904919

PATIENT
  Sex: Female

DRUGS (1)
  1. TOPAMAX [Suspect]
     Indication: EPILEPSY
     Route: 048

REACTIONS (10)
  - AMNIOTIC INFECTION SYNDROME OF BLANE [None]
  - ATELECTASIS NEONATAL [None]
  - CAESAREAN SECTION [None]
  - CONGENITAL MUSCULOSKELETAL ANOMALY [None]
  - CONGENITAL SCOLIOSIS [None]
  - DRUG EXPOSURE DURING PREGNANCY [None]
  - DUCTUS ARTERIOSUS STENOSIS FOETAL [None]
  - INTRA-UTERINE DEATH [None]
  - PNEUMOTHORAX [None]
  - PREMATURE RUPTURE OF MEMBRANES [None]
